FAERS Safety Report 9678390 (Version 2)
Quarter: 2013Q4

REPORT INFORMATION
  Report Type: Spontaneous
  Country: JP (occurrence: None)
  Receive Date: 20131106
  Receipt Date: 20131203
  Transmission Date: 20140711
  Serious: Yes (Hospitalization, Other)
  Sender: FDA-Public Use
  Company Number: 2010JP006029

PATIENT
  Age: 41 Year
  Sex: Female

DRUGS (14)
  1. PROGRAF [Suspect]
     Indication: LUPUS NEPHRITIS
     Route: 048
     Dates: start: 20091007
  2. ADALAT CR [Suspect]
     Route: 048
     Dates: start: 20081015, end: 20130327
  3. PREDNISOLONE(PREDNISOLONE) [Concomitant]
  4. CALBLOCK(AZELNIDIPINE) [Concomitant]
  5. DIOVAN(VALSARTAN) [Concomitant]
  6. GASTER(FAMOTIDINE) [Concomitant]
  7. FERROMIA(FERROUS SODIUM CITRATE) [Concomitant]
  8. ACTONEL(RISEDRONATE SODIUM) [Concomitant]
  9. TAKEPRON(LANSOPRAZOLE) [Concomitant]
  10. DORNER(BERAPRST SODIUM) [Concomitant]
  11. ARTIST(CARVEDILOL) [Concomitant]
  12. GLAKAY(MENATETRENONE) [Concomitant]
  13. FOSAMAC(ALENDRONATE SODIUM) [Concomitant]
  14. MEVALOTIN(PRVASTATIN SODIUM) [Concomitant]

REACTIONS (7)
  - Cardiac failure chronic [None]
  - Vascular skin disorder [None]
  - Oedema peripheral [None]
  - Metrorrhagia [None]
  - Ventricular extrasystoles [None]
  - Adenomyosis [None]
  - Endometrial hypertrophy [None]
